FAERS Safety Report 9405954 (Version 2)
Quarter: 2013Q3

REPORT INFORMATION
  Report Type: Report from Study
  Country: JP (occurrence: JP)
  Receive Date: 20130717
  Receipt Date: 20130904
  Transmission Date: 20140515
  Serious: Yes (Other)
  Sender: FDA-Public Use
  Company Number: JP-GLAXOSMITHKLINE-B0907570A

PATIENT
  Age: 27 Year
  Sex: Female
  Weight: 62 kg

DRUGS (12)
  1. FLOLAN [Suspect]
     Indication: PULMONARY ARTERIAL HYPERTENSION
     Route: 042
  2. VOLIBRIS [Suspect]
     Indication: PULMONARY ARTERIAL HYPERTENSION
     Dosage: 2.5MG PER DAY
     Route: 048
     Dates: start: 20120130, end: 20120328
  3. VOLIBRIS [Suspect]
     Indication: PULMONARY ARTERIAL HYPERTENSION
     Dosage: 5MG PER DAY
     Route: 048
     Dates: start: 20120329
  4. REVATIO [Concomitant]
     Indication: PULMONARY ARTERIAL HYPERTENSION
     Route: 048
  5. CARELOAD LA [Concomitant]
     Indication: PULMONARY ARTERIAL HYPERTENSION
     Route: 048
  6. URSO [Concomitant]
     Route: 048
  7. GASCON [Concomitant]
     Indication: ABDOMINAL DISCOMFORT
     Route: 048
  8. PREDONINE [Concomitant]
     Route: 048
  9. DIART [Concomitant]
     Indication: PROPHYLAXIS
     Route: 048
  10. FERROMIA [Concomitant]
     Route: 048
  11. EDIROL [Concomitant]
     Indication: OSTEOPOROSIS PROPHYLAXIS
     Route: 048
     Dates: start: 201209
  12. ALFAROL [Concomitant]
     Indication: OSTEOPOROSIS PROPHYLAXIS
     Route: 048
     Dates: end: 201209

REACTIONS (3)
  - Erythema [Recovering/Resolving]
  - Headache [Recovering/Resolving]
  - Toxic skin eruption [Recovering/Resolving]
